FAERS Safety Report 7762730-3 (Version None)
Quarter: 2011Q3

REPORT INFORMATION
  Report Type: 
  Country: None (occurrence: None)
  Receive Date: 20110920
  Receipt Date: 20110914
  Transmission Date: 20111222
  Serious: Yes (Other)
  Sender: FDA-Public Use
  Company Number: US-PFIZER INC-2011218191

PATIENT
  Sex: Female

DRUGS (2)
  1. DILANTIN-125 [Suspect]
     Indication: CONVULSION
     Dosage: UNK
  2. LAMICTAL [Suspect]
     Indication: CONVULSION
     Dosage: 25MG, UNKNOWN DOSING
     Route: 048
     Dates: start: 20110602, end: 20110101

REACTIONS (2)
  - DRUG LEVEL DECREASED [None]
  - CONVULSION [None]
